FAERS Safety Report 8701565 (Version 3)
Quarter: 2013Q4

REPORT INFORMATION
  Report Type: Spontaneous
  Country: JP (occurrence: JP)
  Receive Date: 20120803
  Receipt Date: 20131031
  Transmission Date: 20140711
  Serious: Yes (Other)
  Sender: FDA-Public Use
  Company Number: JP-009507513-1208JPN000036

PATIENT
  Age: 67 Year
  Sex: Female

DRUGS (5)
  1. DECADRON [Suspect]
     Indication: PLASMA CELL MYELOMA
     Dosage: 12 MG, QD
     Route: 048
     Dates: start: 201101
  2. DECADRON [Suspect]
     Dosage: 20 MG, QD
     Dates: start: 201008
  3. LENALIDOMIDE [Suspect]
     Indication: PLASMA CELL MYELOMA
     Dosage: 5 MG,
     Route: 048
     Dates: start: 201008
  4. LENALIDOMIDE [Suspect]
     Dosage: 10 MG,
     Route: 048
  5. LENALIDOMIDE [Suspect]
     Dosage: UNK
     Route: 048
     Dates: start: 201101

REACTIONS (4)
  - Blood calcium decreased [Unknown]
  - Blood magnesium decreased [Unknown]
  - Tetany [Unknown]
  - Blood alkaline phosphatase increased [Unknown]
